FAERS Safety Report 7400100-8 (Version None)
Quarter: 2011Q2

REPORT INFORMATION
  Report Type: 
  Country: None (occurrence: None)
  Receive Date: 20110407
  Receipt Date: 20091008
  Transmission Date: 20111010
  Serious: Yes (Other)
  Sender: FDA-Public Use
  Company Number: PHHY2009DE67749

PATIENT
  Sex: Female

DRUGS (3)
  1. IBUPROFEN [Concomitant]
     Dosage: 1 DF, AFTER THE INJECTION
  2. EXTAVIA [Suspect]
     Indication: MULTIPLE SCLEROSIS
     Dosage: 250 UG, QOD
     Route: 058
     Dates: start: 20091001, end: 20091016
  3. EXTAVIA [Suspect]
     Route: 058

REACTIONS (10)
  - STRESS [None]
  - ARTHRALGIA [None]
  - INFLUENZA LIKE ILLNESS [None]
  - CHILLS [None]
  - INSOMNIA [None]
  - CONTUSION [None]
  - MULTIPLE SCLEROSIS RELAPSE [None]
  - ANAEMIA [None]
  - PAIN IN EXTREMITY [None]
  - BRONCHITIS [None]
